FAERS Safety Report 4961799-9 (Version None)
Quarter: 2006Q1

REPORT INFORMATION
  Report Type: 
  Country: None (occurrence: None)
  Receive Date: 20060329
  Receipt Date: 20060317
  Transmission Date: 20060701
  Serious: Yes (Death)
  Sender: FDA-Public Use
  Company Number: 2006S1001877

PATIENT
  Age: 75 Year
  Sex: Male

DRUGS (9)
  1. CLOZAPINE [Suspect]
     Indication: DELUSION
     Dosage: 25 MG;QD;ORAL
     Route: 048
     Dates: start: 20060118, end: 20060221
  2. CLOZAPINE [Suspect]
     Indication: DEMENTIA
     Dosage: 25 MG;QD;ORAL
     Route: 048
     Dates: start: 20060118, end: 20060221
  3. CLOZAPINE [Suspect]
     Indication: PARKINSON'S DISEASE
     Dosage: 25 MG;QD;ORAL
     Route: 048
     Dates: start: 20060118, end: 20060221
  4. MORPHINE [Concomitant]
  5. CITALOPRAM [Concomitant]
  6. HYOSCYAMINE [Concomitant]
  7. CARBIDOPA AND LEVODOPA [Concomitant]
  8. PARACETAMOL [Concomitant]
  9. VITAMINS [Concomitant]

REACTIONS (5)
  - DEMENTIA ALZHEIMER'S TYPE [None]
  - DEPRESSION [None]
  - GENERAL PHYSICAL HEALTH DETERIORATION [None]
  - PARKINSON'S DISEASE [None]
  - SECRETION DISCHARGE [None]
